FAERS Safety Report 9438554 (Version 1)
Quarter: 2013Q3

REPORT INFORMATION
  Report Type: Spontaneous
  Country: GB (occurrence: GB)
  Receive Date: 20130802
  Receipt Date: 20130802
  Transmission Date: 20140515
  Serious: Yes (Life-Threatening, Hospitalization, Other)
  Sender: FDA-Public Use
  Company Number: GB-B.I. PHARMACEUTICALS,INC./RIDGEFIELD-2013-BI-23191YA

PATIENT
  Age: 88 Year
  Sex: Female

DRUGS (10)
  1. TAMSULOSINA [Suspect]
     Indication: PRODUCT USED FOR UNKNOWN INDICATION
     Dosage: 400 MCG
     Route: 048
  2. AMITRIPTYLINE [Concomitant]
  3. ANASTROZOLE [Concomitant]
  4. CYCLIZINE [Concomitant]
  5. MACROGOL [Concomitant]
  6. MIRTAZAPINE [Concomitant]
  7. PARACETAMOL [Concomitant]
  8. SENNA [Concomitant]
  9. TRAMADOL [Concomitant]
  10. ZOPICLONE [Concomitant]

REACTIONS (2)
  - Hypokalaemia [Unknown]
  - Gastrointestinal hypomotility [Recovered/Resolved]
